FAERS Safety Report 4374572-X (Version None)
Quarter: 2004Q2

REPORT INFORMATION
  Report Type: 
  Country: None (occurrence: None)
  Receive Date: 20040603
  Receipt Date: 20040513
  Transmission Date: 20050107
  Serious: Yes (Other)
  Sender: FDA-Public Use
  Company Number: CA_040506950

PATIENT
  Age: 60 Year
  Sex: Female

DRUGS (4)
  1. PERMAX [Suspect]
     Dosage: 1 MG/3 DAY
  2. AMANTADINE HCL [Concomitant]
  3. SINEMET [Concomitant]
  4. VENLAFAXINE [Concomitant]

REACTIONS (5)
  - DYSPNOEA [None]
  - LETHARGY [None]
  - MITRAL VALVE STENOSIS [None]
  - OEDEMA PERIPHERAL [None]
  - TACHYCARDIA [None]
